FAERS Safety Report 8166761-3 (Version None)
Quarter: 2012Q1

REPORT INFORMATION
  Report Type: 
  Country: None (occurrence: None)
  Receive Date: 20120227
  Receipt Date: 20120215
  Transmission Date: 20120608
  Serious: Yes (Death)
  Sender: FDA-Public Use
  Company Number: JP-MILLENNIUM PHARMACEUTICALS, INC.-2012-00881

PATIENT

DRUGS (3)
  1. VELCADE [Suspect]
     Indication: MULTIPLE MYELOMA
     Dosage: 1.3 MG/M2, UNK
     Route: 042
     Dates: start: 20120116, end: 20120119
  2. PREDNISOLONE [Concomitant]
     Indication: MULTIPLE MYELOMA
     Dosage: 40 MG, UNK
     Route: 048
     Dates: start: 20120116, end: 20120119
  3. MELPHALAN [Concomitant]
     Indication: MULTIPLE MYELOMA
     Dosage: 6 MG, QD
     Route: 048
     Dates: start: 20120116, end: 20120119

REACTIONS (1)
  - CEREBRAL INFARCTION [None]
